FAERS Safety Report 8455297-8 (Version None)
Quarter: 2012Q2

REPORT INFORMATION
  Report Type: 
  Country: None (occurrence: None)
  Receive Date: 20120621
  Receipt Date: 20120613
  Transmission Date: 20120825
  Serious: Yes (Disabling)
  Sender: FDA-Public Use
  Company Number: JP-B.I. PHARMACEUTICALS,INC./RIDGEFIELD-2012-BP-13529NB

PATIENT
  Sex: Male
  Weight: 60 kg

DRUGS (5)
  1. TANATRIL [Concomitant]
     Dosage: 5 MG
     Route: 048
     Dates: start: 20120306
  2. RIVASTACH [Concomitant]
     Dosage: 18 MG
     Route: 062
  3. MAGLAX [Concomitant]
     Dosage: 330 MG
     Route: 048
  4. PRADAXA [Suspect]
     Indication: THROMBOSIS PROPHYLAXIS
     Dosage: 220 MG
     Route: 048
     Dates: start: 20120306
  5. MUCOSTA [Concomitant]
     Dosage: 100 MG
     Route: 048

REACTIONS (1)
  - CONVULSION [None]
